FAERS Safety Report 5473578-7 (Version None)
Quarter: 2007Q4

REPORT INFORMATION
  Report Type: 
  Country: None (occurrence: None)
  Receive Date: 20071001
  Receipt Date: 20070517
  Transmission Date: 20080405
  Serious: Yes (Other)
  Sender: FDA-Public Use
  Company Number: US-ASTRAZENECA-2007UW12245

PATIENT
  Age: 64 Year
  Sex: Female
  Weight: 68 kg

DRUGS (6)
  1. ARIMIDEX [Suspect]
     Route: 048
     Dates: start: 20061101
  2. LITHIUM [Concomitant]
  3. LEVOXYL [Concomitant]
  4. PROPRANOLOL [Concomitant]
     Indication: TREMOR
  5. LIPITOR [Concomitant]
  6. PREMARIN [Concomitant]
     Indication: VULVOVAGINAL DRYNESS
     Route: 061
     Dates: start: 19970101

REACTIONS (2)
  - BLOOD CHOLESTEROL INCREASED [None]
  - VAGINAL PAIN [None]
